FAERS Safety Report 8561035-0 (Version None)
Quarter: 2012Q3

REPORT INFORMATION
  Report Type: 
  Country: None (occurrence: None)
  Receive Date: 20120802
  Receipt Date: 20110823
  Transmission Date: 20120928
  Serious: No
  Sender: FDA-Public Use
  Company Number: US-BRISTOL-MYERS SQUIBB COMPANY-15993850

PATIENT
  Sex: Male

DRUGS (2)
  1. REYATAZ [Suspect]
     Dosage: 1DF:2 UNITS NOS 200MG CAPS
  2. ZIAGEN [Concomitant]

REACTIONS (1)
  - ABDOMINAL DISTENSION [None]
